FAERS Safety Report 21618325 (Version 4)
Quarter: 2023Q1

REPORT INFORMATION
  Report Type: Report from Study
  Country: US (occurrence: US)
  Receive Date: 20221119
  Receipt Date: 20230118
  Transmission Date: 20230418
  Serious: No
  Sender: FDA-Public Use
  Company Number: US-002147023-NVSC2022US260795

PATIENT
  Sex: Female

DRUGS (2)
  1. COSENTYX [Suspect]
     Active Substance: SECUKINUMAB
     Indication: Psoriasis
     Dosage: 300 MG, QMO
     Route: 058
  2. COSENTYX [Suspect]
     Active Substance: SECUKINUMAB
     Dosage: 300 MG/KG, QW
     Route: 058
     Dates: start: 202211, end: 202212

REACTIONS (7)
  - Lethargy [Unknown]
  - Cough [Unknown]
  - Constipation [Unknown]
  - Abdominal pain [Unknown]
  - Nausea [Unknown]
  - Diarrhoea [Unknown]
  - Sinusitis [Unknown]
